FAERS Safety Report 9035890 (Version 1)
Quarter: 2013Q1

REPORT INFORMATION
  Report Type: Spontaneous
  Country: US (occurrence: US)
  Receive Date: 20130129
  Receipt Date: 20130129
  Transmission Date: 20140127
  Serious: No
  Sender: FDA-Public Use
  Company Number: US-ABBOTT-12P-163-0923294-00

PATIENT
  Sex: Female
  Weight: 77.18 kg

DRUGS (7)
  1. HUMIRA 40 MG/0.8 ML PEN [Suspect]
     Indication: RHEUMATOID ARTHRITIS
     Route: 058
     Dates: start: 201105, end: 201106
  2. HUMIRA 40 MG/0.8 ML PEN [Suspect]
     Route: 058
     Dates: start: 201106
  3. DURAGESTIC PATCH 100 [Concomitant]
     Indication: PAIN
     Dosage: 1 PATCH
     Route: 062
     Dates: start: 201103
  4. OXYCOTIN [Concomitant]
     Indication: PAIN
     Dosage: 40MG TABLET
     Dates: start: 201103
  5. OXYCOTIN [Concomitant]
     Dosage: 40MG TABLET
  6. PERCOCET [Concomitant]
     Indication: BREAKTHROUGH PAIN
     Dosage: TWO 10MG TABLETS BID  PRN
     Dates: start: 201104
  7. NEURONTIN [Concomitant]
     Indication: PERONEAL MUSCULAR ATROPHY
     Dates: start: 201103

REACTIONS (4)
  - Drug ineffective [Recovering/Resolving]
  - Pain [Recovering/Resolving]
  - Incorrect dose administered [Recovered/Resolved]
  - Device malfunction [Unknown]
